FAERS Safety Report 18237491 (Version 1)
Quarter: 2020Q3

REPORT INFORMATION
  Report Type: Spontaneous
  Country: FR (occurrence: FR)
  Receive Date: 20200907
  Receipt Date: 20200907
  Transmission Date: 20201103
  Serious: Yes (Hospitalization)
  Sender: FDA-Public Use
  Company Number: FR-TEVA-2020-FR-1823368

PATIENT
  Age: 19 Year
  Sex: Female

DRUGS (4)
  1. AMOXICILLINE [Suspect]
     Active Substance: AMOXICILLIN
     Indication: INFECTIOUS MONONUCLEOSIS
     Route: 048
     Dates: start: 20200106, end: 20200112
  2. AUGMENTIN [Suspect]
     Active Substance: AMOXICILLIN\CLAVULANATE POTASSIUM
     Indication: INFECTIOUS MONONUCLEOSIS
     Route: 048
     Dates: start: 20200113, end: 20200114
  3. PREDNISOLONE. [Concomitant]
     Active Substance: PREDNISOLONE
     Indication: INFECTIOUS MONONUCLEOSIS
     Route: 048
     Dates: start: 20200109, end: 20200110
  4. CETIRIZINE (DICHLORHYDRATE DE) [Concomitant]
     Active Substance: CETIRIZINE HYDROCHLORIDE
     Indication: INFECTIOUS MONONUCLEOSIS
     Route: 048
     Dates: start: 20200106, end: 20200112

REACTIONS (2)
  - Rash maculo-papular [Recovered/Resolved]
  - Toxic skin eruption [Recovered/Resolved]

NARRATIVE: CASE EVENT DATE: 20200114
